FAERS Safety Report 16239316 (Version 1)
Quarter: 2019Q2

REPORT INFORMATION
  Report Type: Spontaneous
  Country: MY (occurrence: MY)
  Receive Date: 20190425
  Receipt Date: 20190425
  Transmission Date: 20190711
  Serious: Yes (Death, Hospitalization)
  Sender: FDA-Public Use
  Company Number: MY-ROCHE-2308112

PATIENT
  Age: 59 Year
  Sex: Male

DRUGS (1)
  1. ACTILYSE [Suspect]
     Active Substance: ALTEPLASE
     Indication: CEREBROVASCULAR ACCIDENT
     Route: 065
     Dates: start: 201904

REACTIONS (3)
  - Haemorrhage [Unknown]
  - Death [Fatal]
  - Tongue haemorrhage [Unknown]

NARRATIVE: CASE EVENT DATE: 201904
